FAERS Safety Report 24449372 (Version 1)
Quarter: 2024Q4

REPORT INFORMATION
  Report Type: Spontaneous
  Country: MX (occurrence: MX)
  Receive Date: 20241017
  Receipt Date: 20241017
  Transmission Date: 20250114
  Serious: Yes (Hospitalization, Other)
  Sender: SANOFI AVENTIS
  Company Number: MX-SA-2024SA293758

PATIENT
  Sex: Female

DRUGS (1)
  1. LANTUS [Suspect]
     Active Substance: INSULIN GLARGINE
     Dosage: UNK

REACTIONS (4)
  - Renal cancer [Unknown]
  - Hypertension [Unknown]
  - Visual impairment [Unknown]
  - Product storage error [Unknown]

NARRATIVE: CASE EVENT DATE: 20241008
